FAERS Safety Report 24782736 (Version 1)
Quarter: 2024Q4

REPORT INFORMATION
  Report Type: Spontaneous
  Country: DE (occurrence: DE)
  Receive Date: 20241227
  Receipt Date: 20241227
  Transmission Date: 20250114
  Serious: Yes (Other)
  Sender: PFIZER
  Company Number: None

PATIENT
  Age: 3 Year
  Sex: Male
  Weight: 18 kg

DRUGS (1)
  1. METHSUXIMIDE [Suspect]
     Active Substance: METHSUXIMIDE
     Indication: Epilepsy
     Dosage: FREQ:.5 D;150 MG 2X TGL.
     Route: 048
     Dates: start: 20241127, end: 20241206

REACTIONS (2)
  - Erythema multiforme [Recovering/Resolving]
  - Pruritus [Recovering/Resolving]

NARRATIVE: CASE EVENT DATE: 20241201
